FAERS Safety Report 24287665 (Version 1)
Quarter: 2024Q3

REPORT INFORMATION
  Report Type: Spontaneous
  Country: US (occurrence: US)
  Receive Date: 20240905
  Receipt Date: 20240905
  Transmission Date: 20241017
  Serious: No
  Sender: PERRIGO
  Company Number: US-PERRIGO-24US004503

PATIENT
  Age: 3 Year
  Sex: Female
  Weight: 13.152 kg

DRUGS (2)
  1. LORATADINE [Suspect]
     Active Substance: LORATADINE
     Indication: Seasonal allergy
     Dosage: 5 MG, QD
     Route: 048
     Dates: start: 202311
  2. LORATADINE [Suspect]
     Active Substance: LORATADINE
     Indication: Product administration error
     Dosage: 5 MG, TWICE
     Route: 048
     Dates: start: 20240508, end: 20240508

REACTIONS (1)
  - Extra dose administered [Unknown]

NARRATIVE: CASE EVENT DATE: 20240508
